FAERS Safety Report 5210587-7 (Version None)
Quarter: 2007Q1

REPORT INFORMATION
  Report Type: 
  Country: None (occurrence: None)
  Receive Date: 20070117
  Receipt Date: 20070111
  Transmission Date: 20070707
  Serious: Yes (Death, Hospitalization)
  Sender: FDA-Public Use
  Company Number: FR-MERCK-0701FRA00032

PATIENT
  Age: 84 Year
  Sex: Female

DRUGS (3)
  1. ZOCOR [Suspect]
     Indication: HYPERCHOLESTEROLAEMIA
     Route: 048
     Dates: end: 20060601
  2. LEVOTHYROXINE SODIUM [Concomitant]
     Indication: HYPOTHYROIDISM
     Route: 048
  3. TAMOXIFEN CITRATE [Concomitant]
     Indication: BREAST CANCER IN SITU
     Route: 048

REACTIONS (6)
  - ARTHRALGIA [None]
  - PANCYTOPENIA [None]
  - RENAL FAILURE ACUTE [None]
  - RHABDOMYOLYSIS [None]
  - SHOCK [None]
  - STAPHYLOCOCCAL SEPSIS [None]
